FAERS Safety Report 12100105 (Version 1)
Quarter: 2016Q1

REPORT INFORMATION
  Report Type: Spontaneous
  Country: US (occurrence: None)
  Receive Date: 20160219
  Receipt Date: 20160219
  Transmission Date: 20160526
  Serious: No
  Sender: FDA-Public Use
  Company Number: None

PATIENT
  Age: 49 Year
  Sex: Female

DRUGS (1)
  1. TECFIDERA [Suspect]
     Active Substance: DIMETHYL FUMARATE
     Indication: MULTIPLE SCLEROSIS
     Dosage: 1 CAP TWICE DAILY PO
     Route: 048
     Dates: start: 20140813

REACTIONS (2)
  - White blood cell disorder [None]
  - Appetite disorder [None]

NARRATIVE: CASE EVENT DATE: 201511
